FAERS Safety Report 5281783-8 (Version None)
Quarter: 2007Q1

REPORT INFORMATION
  Report Type: 
  Country: None (occurrence: None)
  Receive Date: 20070330
  Receipt Date: 20070327
  Transmission Date: 20070707
  Serious: Yes (Other)
  Sender: FDA-Public Use
  Company Number: DE-GLAXOSMITHKLINE-D0052752A

PATIENT
  Sex: Female

DRUGS (1)
  1. MALARONE [Suspect]
     Indication: MALARIA PROPHYLAXIS
     Dosage: 350MG UNKNOWN
     Route: 048
     Dates: start: 20070101

REACTIONS (3)
  - FEAR [None]
  - HALLUCINATION [None]
  - PERSECUTORY DELUSION [None]
